FAERS Safety Report 25679771 (Version 1)
Quarter: 2025Q3

REPORT INFORMATION
  Report Type: Spontaneous
  Country: VN (occurrence: VN)
  Receive Date: 20250814
  Receipt Date: 20250814
  Transmission Date: 20251021
  Serious: Yes (Life-Threatening, Hospitalization, Other)
  Sender: ZYDUS PHARM
  Company Number: VN-CADILA HEALTHCARE LIMITED-VN-ZYDUS-127255

PATIENT

DRUGS (1)
  1. AMLODIPINE [Suspect]
     Active Substance: AMLODIPINE BESYLATE
     Indication: Hypertension
     Route: 048

REACTIONS (6)
  - Acute respiratory distress syndrome [Recovering/Resolving]
  - Bradycardia [Recovering/Resolving]
  - Cardiac dysfunction [Recovering/Resolving]
  - Non-cardiogenic pulmonary oedema [Recovering/Resolving]
  - Hypotension [Recovering/Resolving]
  - Overdose [Unknown]
